FAERS Safety Report 14727573 (Version 1)
Quarter: 2018Q2

REPORT INFORMATION
  Report Type: Spontaneous
  Country: US (occurrence: US)
  Receive Date: 20180406
  Receipt Date: 20180406
  Transmission Date: 20180711
  Serious: No
  Sender: FDA-Public Use
  Company Number: US-ASTRAZENECA-2018SE38858

PATIENT
  Age: 514 Day
  Sex: Male

DRUGS (1)
  1. SYNAGIS [Suspect]
     Active Substance: PALIVIZUMAB
     Indication: ANTIVIRAL PROPHYLAXIS
     Route: 030
     Dates: start: 20180122

REACTIONS (3)
  - Rhinorrhoea [Unknown]
  - Chest discomfort [Unknown]
  - Cough [Unknown]

NARRATIVE: CASE EVENT DATE: 20180320
